FAERS Safety Report 10969301 (Version 1)
Quarter: 2015Q1

REPORT INFORMATION
  Report Type: Spontaneous
  Country: US (occurrence: None)
  Receive Date: 20150330
  Receipt Date: 20150330
  Transmission Date: 20150721
  Serious: Yes (Death)
  Sender: FDA-Public Use
  Company Number: None

PATIENT
  Age: 54 Year
  Sex: Male
  Weight: 65.18 kg

DRUGS (11)
  1. ERLOTINIB [Suspect]
     Active Substance: ERLOTINIB
  2. LOVENOX [Concomitant]
     Active Substance: ENOXAPARIN SODIUM
  3. NOVOLOG [Concomitant]
     Active Substance: INSULIN ASPART
  4. CARBOPLATIN. [Suspect]
     Active Substance: CARBOPLATIN
     Dosage: 1.5 AUC WEEKLY
  5. DOXYCYCLINE. [Concomitant]
     Active Substance: DOXYCYCLINE
  6. HUMULIN NOS [Concomitant]
     Active Substance: INSULIN HUMAN
  7. CLINDAMYCIN [Concomitant]
     Active Substance: CLINDAMYCIN\CLINDAMYCIN PHOSPHATE
  8. LISINOPRIL. [Concomitant]
     Active Substance: LISINOPRIL
  9. ASPIRIN. [Concomitant]
     Active Substance: ASPIRIN
  10. CETUXIMAB [Suspect]
     Active Substance: CETUXIMAB
  11. PACLITAXEL. [Suspect]
     Active Substance: PACLITAXEL

REACTIONS (2)
  - Malignant neoplasm progression [None]
  - Epistaxis [None]

NARRATIVE: CASE EVENT DATE: 20150325
